FAERS Safety Report 7041974-2 (Version None)
Quarter: 2010Q4

REPORT INFORMATION
  Report Type: 
  Country: None (occurrence: None)
  Receive Date: 20101013
  Receipt Date: 20091026
  Transmission Date: 20110411
  Serious: No
  Sender: FDA-Public Use
  Company Number: US-ASTRAZENECA-2009SE22561

PATIENT
  Age: 75 Year
  Sex: Male
  Weight: 87.1 kg

DRUGS (5)
  1. SYMBICORT [Suspect]
     Dosage: 160/4.5
     Route: 055
  2. SIMVASTATIN [Concomitant]
  3. OMEPRAZOLE [Concomitant]
  4. METOPROLOL [Concomitant]
  5. ASPIRIN [Concomitant]

REACTIONS (1)
  - DYSURIA [None]
